FAERS Safety Report 21074097 (Version 1)
Quarter: 2022Q3

REPORT INFORMATION
  Report Type: Spontaneous
  Country: IT (occurrence: IT)
  Receive Date: 20220713
  Receipt Date: 20220713
  Transmission Date: 20221027
  Serious: Yes (Other)
  Sender: FDA-Public Use
  Company Number: IT-SUN PHARMACEUTICAL INDUSTRIES LTD-2022R1-343996

PATIENT
  Age: 31 Year
  Sex: Female

DRUGS (4)
  1. PREDNISONE [Suspect]
     Active Substance: PREDNISONE
     Indication: Antiphospholipid syndrome
     Dosage: 5 MILLIGRAM
     Route: 065
     Dates: start: 1999
  2. PREDNISONE [Suspect]
     Active Substance: PREDNISONE
     Indication: Systemic lupus erythematosus
  3. HEPARIN [Suspect]
     Active Substance: HEPARIN SODIUM
     Indication: Antiphospholipid syndrome
     Dosage: 0.2 MILLILITER, BID
     Route: 065
     Dates: start: 1999
  4. HEPARIN [Suspect]
     Active Substance: HEPARIN SODIUM
     Indication: Systemic lupus erythematosus

REACTIONS (6)
  - Premature delivery [Unknown]
  - Blood pressure increased [Unknown]
  - Hemiplegia [Unknown]
  - Exposure during pregnancy [Unknown]
  - Dysarthria [Unknown]
  - Pruritus [Unknown]

NARRATIVE: CASE EVENT DATE: 19990101
